FAERS Safety Report 23537846 (Version 2)
Quarter: 2024Q3

REPORT INFORMATION
  Report Type: Report from Study
  Country: US (occurrence: US)
  Receive Date: 20240219
  Receipt Date: 20240731
  Transmission Date: 20241016
  Serious: No
  Sender: AURINIA PHARMACEUTICALS
  Company Number: US-AURINIA PHARMACEUTICALS INC.-AUR-004942

PATIENT
  Age: 33 Year
  Sex: Female
  Weight: 60 kg

DRUGS (11)
  1. LUPKYNIS [Suspect]
     Active Substance: VOCLOSPORIN
     Indication: Systemic lupus erythematosus
     Dosage: 47.4 MILLIGRAM, QD
     Route: 048
     Dates: start: 20230710, end: 20231127
  2. LUPKYNIS [Suspect]
     Active Substance: VOCLOSPORIN
     Indication: Lupus nephritis
     Dosage: 23.7 MILLIGRAM, BID
     Route: 048
     Dates: start: 20240109
  3. LUPKYNIS [Suspect]
     Active Substance: VOCLOSPORIN
     Dosage: 23.7 MILLIGRAM, BID
     Route: 048
     Dates: end: 20240228
  4. ISONIAZID [Suspect]
     Active Substance: ISONIAZID
     Indication: Antibiotic prophylaxis
     Dosage: 300 MILLIGRAM, QD
     Route: 048
     Dates: start: 20231018
  5. RIFAMPIN [Suspect]
     Active Substance: RIFAMPIN
     Indication: Antibiotic prophylaxis
     Dosage: 600 MILLIGRAM, QD
     Route: 048
     Dates: start: 20231018
  6. ATORVASTATIN [Concomitant]
     Active Substance: ATORVASTATIN
     Indication: Nephrotic syndrome
     Dosage: 40 MILLIGRAM, QD
     Dates: start: 20180509
  7. HYDROXYCHLOROQUINE [Concomitant]
     Active Substance: HYDROXYCHLOROQUINE
     Indication: Systemic lupus erythematosus
     Dosage: 200 MILLIGRAM, QD
     Dates: start: 20200511
  8. MYCOPHENOLIC ACID [Concomitant]
     Active Substance: MYCOPHENOLIC ACID
     Indication: Nephrotic syndrome
     Dosage: 1500 MILLIGRAM, BID
     Route: 048
     Dates: start: 20221222
  9. PYRIDOXINE [Concomitant]
     Active Substance: PYRIDOXINE
     Indication: Product used for unknown indication
     Dosage: 50 MILLIGRAM, QD
     Route: 048
     Dates: start: 20231018
  10. PYRIDOXINE [Concomitant]
     Active Substance: PYRIDOXINE
     Dosage: 500 MILLIGRAM, QD
     Route: 048
     Dates: start: 20231018
  11. BENLYSTA [Concomitant]
     Active Substance: BELIMUMAB
     Indication: Systemic lupus erythematosus
     Dosage: 200 MILLIGRAM, EVERY TWO WEEKS ONE INJECTION
     Route: 042
     Dates: start: 20240212

REACTIONS (4)
  - Nausea [Recovered/Resolved]
  - Liver function test increased [Recovering/Resolving]
  - Drug ineffective [Unknown]
  - Off label use [Unknown]

NARRATIVE: CASE EVENT DATE: 20231127
